FAERS Safety Report 5529583-5 (Version None)
Quarter: 2007Q4

REPORT INFORMATION
  Report Type: 
  Country: None (occurrence: None)
  Receive Date: 20071129
  Receipt Date: 20071122
  Transmission Date: 20080405
  Serious: Yes (Disabling)
  Sender: FDA-Public Use
  Company Number: BE-ASTRAZENECA-2007AC02200

PATIENT
  Sex: Female
  Weight: 48.3 kg

DRUGS (3)
  1. MOPRAL [Suspect]
     Route: 048
     Dates: start: 20050101, end: 20070601
  2. ESTROGEL [Concomitant]
  3. PREDNISOLONE [Concomitant]

REACTIONS (8)
  - BLOOD SODIUM DECREASED [None]
  - CONFUSIONAL STATE [None]
  - FATIGUE [None]
  - GASTROINTESTINAL CANDIDIASIS [None]
  - HYPERSENSITIVITY [None]
  - PAIN [None]
  - PHOTOSENSITIVITY REACTION [None]
  - URTICARIA [None]
